FAERS Safety Report 17845941 (Version 1)
Quarter: 2020Q2

REPORT INFORMATION
  Report Type: Other
  Country: IT (occurrence: IT)
  Receive Date: 20200601
  Receipt Date: 20200601
  Transmission Date: 20200714
  Serious: Yes (Other)
  Sender: FDA-Public Use
  Company Number: IT-EMD SERONO-9164596

PATIENT
  Age: 49 Year
  Sex: Female

DRUGS (4)
  1. CLADRIBINE. [Suspect]
     Active Substance: CLADRIBINE
     Dosage: SECOND YEAR FIRST CYCLE THERAPY.
     Route: 048
     Dates: start: 202002
  2. CLADRIBINE. [Suspect]
     Active Substance: CLADRIBINE
     Indication: RELAPSING-REMITTING MULTIPLE SCLEROSIS
     Dosage: FIRST YEAR FIRST CYCLE THERAPY (AS PER 75 KG)
     Route: 048
     Dates: start: 201902
  3. CLADRIBINE. [Suspect]
     Active Substance: CLADRIBINE
     Dosage: SECOND YEAR SECOND CYCLE THERAPY
     Route: 048
     Dates: start: 202003
  4. CLADRIBINE. [Suspect]
     Active Substance: CLADRIBINE
     Dosage: FIRST YEAR SECOND CYCLE THERAPY.
     Route: 048
     Dates: start: 20190311, end: 20190315

REACTIONS (3)
  - Lymphocyte count decreased [Recovered/Resolved]
  - Leukopenia [Recovered/Resolved]
  - Neutropenia [Recovered/Resolved]
